FAERS Safety Report 5377186-8 (Version None)
Quarter: 2007Q3

REPORT INFORMATION
  Report Type: 
  Country: None (occurrence: None)
  Receive Date: 20070703
  Receipt Date: 20070621
  Transmission Date: 20080115
  Serious: Yes (Hospitalization)
  Sender: FDA-Public Use
  Company Number: US-ELI_LILLY_AND_COMPANY-US200706005121

PATIENT
  Age: 64 Year
  Sex: Female

DRUGS (1)
  1. HUMALOG MIX 75/25 [Suspect]
     Indication: DIABETES MELLITUS
     Dates: start: 20020101

REACTIONS (5)
  - ANAEMIA [None]
  - CARPAL TUNNEL SYNDROME [None]
  - HALLUCINATION [None]
  - LOSS OF CONSCIOUSNESS [None]
  - RHEUMATOID ARTHRITIS [None]
